FAERS Safety Report 9383773 (Version 1)
Quarter: 2013Q3

REPORT INFORMATION
  Report Type: Spontaneous
  Country: FR (occurrence: FR)
  Receive Date: 20130704
  Receipt Date: 20130704
  Transmission Date: 20140515
  Serious: Yes (Hospitalization)
  Sender: FDA-Public Use
  Company Number: FR-PFIZER INC-2013192198

PATIENT
  Age: 66 Year
  Sex: Female

DRUGS (5)
  1. ZYVOXID [Suspect]
     Indication: STAPHYLOCOCCAL INFECTION
     Dosage: 600 MG, 2X/DAY
     Route: 048
     Dates: start: 20130515, end: 20130524
  2. RIMACTAN [Suspect]
     Indication: STAPHYLOCOCCAL INFECTION
     Dosage: 1500 MG/DAY
     Route: 048
     Dates: start: 20130424
  3. BACTRIM [Suspect]
     Indication: STAPHYLOCOCCAL INFECTION
     Dosage: UNK
     Route: 048
     Dates: start: 20130429, end: 20130508
  4. OFLOCET [Suspect]
     Indication: STAPHYLOCOCCAL INFECTION
     Dosage: UNK
     Route: 048
     Dates: start: 20130424, end: 20130429
  5. FUCIDINE [Concomitant]
     Indication: STAPHYLOCOCCAL INFECTION
     Dosage: UNK
     Dates: start: 201305, end: 201305

REACTIONS (1)
  - VIIth nerve paralysis [Not Recovered/Not Resolved]
